FAERS Safety Report 18152692 (Version 1)
Quarter: 2020Q3

REPORT INFORMATION
  Report Type: Spontaneous
  Country: NL (occurrence: GB)
  Receive Date: 20200814
  Receipt Date: 20200814
  Transmission Date: 20201103
  Serious: Yes (Other)
  Sender: FDA-Public Use
  Company Number: GB-ENDO PHARMACEUTICALS INC-2020-005509

PATIENT
  Age: 33 Year
  Sex: Female

DRUGS (1)
  1. TESTIM [Suspect]
     Active Substance: TESTOSTERONE
     Indication: TRANSGENDER HORMONAL THERAPY
     Dosage: UNK UNKNOWN, UNKNOWN
     Route: 065

REACTIONS (2)
  - Invasive ductal breast carcinoma [Recovered/Resolved]
  - Off label use [Not Recovered/Not Resolved]
